FAERS Safety Report 8958897 (Version 1)
Quarter: 2012Q4

REPORT INFORMATION
  Report Type: 
  Country: GB (occurrence: GB)
  Receive Date: 20121212
  Receipt Date: 20121212
  Transmission Date: 20130627
  Serious: Yes (Other)
  Sender: FDA-Public Use
  Company Number: GB-ASTELLAS-2012EU010601

PATIENT
  Age: 80 Year
  Sex: Female
  Weight: 68 kg

DRUGS (4)
  1. VESICARE [Suspect]
     Indication: HYPERTONIC BLADDER
     Dosage: 5 mg, UID/QD
     Route: 048
     Dates: start: 20110923, end: 20111213
  2. OMEPRAZOLE [Concomitant]
     Dosage: 20 mg, UID/QD
     Route: 048
     Dates: start: 19960201
  3. AMITRIPTYLINE [Concomitant]
     Dosage: 10 mg, UID/QD
     Route: 048
     Dates: start: 2011
  4. ADCAL                              /00056901/ [Concomitant]
     Indication: OSTEOPOROSIS
     Dosage: UNK
     Route: 048
     Dates: start: 2011

REACTIONS (3)
  - Dry mouth [Recovered/Resolved]
  - Dry eye [Recovered/Resolved]
  - Ageusia [Unknown]
